FAERS Safety Report 23124639 (Version 1)
Quarter: 2023Q4

REPORT INFORMATION
  Report Type: Spontaneous
  Country: US (occurrence: US)
  Receive Date: 20231030
  Receipt Date: 20231030
  Transmission Date: 20240110
  Serious: No
  Sender: FDA-Public Use
  Company Number: US-OPELLA-2023OHG010064

PATIENT
  Sex: Female

DRUGS (3)
  1. DULCOLAX (BISACODYL) [Suspect]
     Active Substance: BISACODYL
     Indication: Constipation
     Route: 065
  2. LOSARTAN [Concomitant]
     Active Substance: LOSARTAN
  3. Metamucil gummy [Concomitant]

REACTIONS (2)
  - No adverse event [Unknown]
  - Drug ineffective [Unknown]
